FAERS Safety Report 20704303 (Version 1)
Quarter: 2022Q2

REPORT INFORMATION
  Report Type: Spontaneous
  Country: US (occurrence: US)
  Receive Date: 20220413
  Receipt Date: 20220413
  Transmission Date: 20220721
  Serious: Yes (Hospitalization)
  Sender: FDA-Public Use
  Company Number: US-SUN PHARMACEUTICAL INDUSTRIES LTD-2022R1-328606

PATIENT
  Age: 36 Year

DRUGS (3)
  1. CAPECITABINE [Suspect]
     Active Substance: CAPECITABINE
     Indication: Pancreatic neuroendocrine tumour
     Dosage: 2300 MILLIGRAM
     Route: 048
     Dates: start: 20200713, end: 20200726
  2. TEMOZOLOMIDE [Suspect]
     Active Substance: TEMOZOLOMIDE
     Indication: Pancreatic neuroendocrine tumour
     Dosage: 325 MILLIGRAM
     Route: 048
     Dates: start: 20200722, end: 20200726
  3. BEVACIZUMAB [Suspect]
     Active Substance: BEVACIZUMAB
     Indication: Pancreatic neuroendocrine tumour
     Dosage: UNK
     Route: 042

REACTIONS (2)
  - Headache [Recovered/Resolved]
  - Pyrexia [Recovered/Resolved]

NARRATIVE: CASE EVENT DATE: 20200801
